FAERS Safety Report 24782740 (Version 2)
Quarter: 2025Q1

REPORT INFORMATION
  Report Type: Spontaneous
  Country: US (occurrence: US)
  Receive Date: 20241227
  Receipt Date: 20250102
  Transmission Date: 20250409
  Serious: Yes (Other)
  Sender: PFIZER
  Company Number: US-PFIZER INC-202400333398

PATIENT
  Age: 64 Year
  Sex: Female

DRUGS (3)
  1. TUKYSA [Suspect]
     Active Substance: TUCATINIB
     Dosage: 300 MG, 2X/DAY
     Route: 048
     Dates: start: 20220929
  2. TRASTUZUMAB [Suspect]
     Active Substance: TRASTUZUMAB
     Dates: start: 20220929
  3. CAPECITABINE [Suspect]
     Active Substance: CAPECITABINE
     Dates: start: 20220929

REACTIONS (28)
  - Hypothyroidism [Unknown]
  - Second primary malignancy [Unknown]
  - Squamous cell carcinoma of skin [Unknown]
  - Haematochezia [Unknown]
  - Ejection fraction decreased [Unknown]
  - Hypertension [Unknown]
  - Adjustment disorder with depressed mood [Unknown]
  - Anxiety disorder [Unknown]
  - Anaemia [Unknown]
  - Occult blood positive [Unknown]
  - Adenoma benign [Unknown]
  - Polyp [Unknown]
  - Actinic keratosis [Unknown]
  - Respiratory syncytial virus infection [Unknown]
  - Rash vesicular [Recovering/Resolving]
  - Rash [Recovering/Resolving]
  - Burning sensation [Recovering/Resolving]
  - Pruritus [Not Recovered/Not Resolved]
  - Pain [Unknown]
  - Herpes zoster [Not Recovered/Not Resolved]
  - Skin mass [Not Recovered/Not Resolved]
  - Dry skin [Unknown]
  - Haemorrhage [Unknown]
  - Gilbert^s syndrome [Unknown]
  - Cancer pain [Unknown]
  - Wound [Unknown]
  - Haemorrhoids [Unknown]
  - Diarrhoea [Unknown]

NARRATIVE: CASE EVENT DATE: 20221108
